FAERS Safety Report 8016940-0 (Version None)
Quarter: 2012Q1

REPORT INFORMATION
  Report Type: 
  Country: None (occurrence: None)
  Receive Date: 20120102
  Receipt Date: 20111221
  Transmission Date: 20120608
  Serious: Yes (Other)
  Sender: FDA-Public Use
  Company Number: JP-NOVOPROD-338677

PATIENT

DRUGS (10)
  1. CINAL [Concomitant]
     Dosage: 1 G, QD
     Route: 048
  2. VICTOZA [Suspect]
     Indication: TYPE 2 DIABETES MELLITUS
     Dosage: 0.3 MG IN MORNING
     Route: 058
     Dates: start: 20111025, end: 20111027
  3. LANSOPRAZOLE [Concomitant]
     Dosage: 15 MG, QD
     Route: 048
  4. DROXIDOPA [Concomitant]
     Dosage: 100 MG, QD
     Route: 048
  5. ALFA D [Concomitant]
     Dosage: 0.25 MG, QD
     Route: 048
  6. CARVEDILOL [Concomitant]
     Dosage: 2.5 MG, QD
     Route: 048
  7. CALCIUM CARBONATE [Concomitant]
     Dosage: 3000 MG, QD
     Route: 048
  8. MAGMITT [Concomitant]
     Dosage: 330 MG, QD
     Route: 048
  9. RISUMIC [Concomitant]
     Dosage: 10 MG, QD
     Route: 048
  10. URSO                               /00465701/ [Concomitant]
     Dosage: 300 MG, QD
     Route: 048

REACTIONS (5)
  - HYPERKALAEMIA [None]
  - HYPERGLYCAEMIA [None]
  - MALAISE [None]
  - DECREASED APPETITE [None]
  - LOSS OF CONSCIOUSNESS [None]
